FAERS Safety Report 10716769 (Version 2)
Quarter: 2015Q1

REPORT INFORMATION
  Report Type: Spontaneous
  Country: TW (occurrence: TW)
  Receive Date: 20150116
  Receipt Date: 20150206
  Transmission Date: 20150721
  Serious: Yes (Death, Hospitalization, Other)
  Sender: FDA-Public Use
  Company Number: TW-PFIZER INC-2014361428

PATIENT
  Age: 68 Year
  Sex: Male

DRUGS (1)
  1. SUTENT [Suspect]
     Active Substance: SUNITINIB MALATE
     Indication: RENAL CELL CARCINOMA
     Dosage: 50 MG, 1X/DAY FOR TWO WEEKS ON AND ONE WEEK OFF
     Route: 048
     Dates: start: 20141210

REACTIONS (6)
  - Death [Fatal]
  - Pleural effusion [Unknown]
  - Pneumonia [Unknown]
  - Platelet count decreased [Unknown]
  - Dyspnoea [Recovering/Resolving]
  - Chest pain [Not Recovered/Not Resolved]

NARRATIVE: CASE EVENT DATE: 20141227
